FAERS Safety Report 4922408-8 (Version None)
Quarter: 2006Q1

REPORT INFORMATION
  Report Type: 
  Country: None (occurrence: None)
  Receive Date: 20060221
  Receipt Date: 20060214
  Transmission Date: 20060701
  Serious: Yes (Disabling)
  Sender: FDA-Public Use
  Company Number: 2006012339

PATIENT
  Age: 55 Year
  Sex: Female

DRUGS (2)
  1. XALATAN [Suspect]
     Indication: GLAUCOMA
     Dosage: (1 IN 1 D)
     Dates: start: 20011117
  2. MAGNESIUM SULFATE [Concomitant]

REACTIONS (8)
  - ARRHYTHMIA [None]
  - CONDITION AGGRAVATED [None]
  - DEAFNESS UNILATERAL [None]
  - EAR DISCOMFORT [None]
  - EYE PAIN [None]
  - IRIS DISORDER [None]
  - LABYRINTHITIS [None]
  - TINNITUS [None]
